FAERS Safety Report 25818941 (Version 2)
Quarter: 2025Q3

REPORT INFORMATION
  Report Type: Spontaneous
  Country: JP (occurrence: JP)
  Receive Date: 20250918
  Receipt Date: 20250926
  Transmission Date: 20251020
  Serious: Yes (Other)
  Sender: PFIZER
  Company Number: JP-GENMAB-2025-02732

PATIENT
  Age: 77 Year
  Sex: Female

DRUGS (1)
  1. TIVDAK [Suspect]
     Active Substance: TISOTUMAB VEDOTIN-TFTV
     Indication: Cervix carcinoma recurrent
     Dosage: 2 MILLIGRAM/KILOGRAM, 1Q3W
     Route: 042
     Dates: start: 20250724

REACTIONS (3)
  - Retinal haemorrhage [Recovered/Resolved]
  - Optic disc haemorrhage [Recovered/Resolved]
  - Oscillopsia [Recovered/Resolved]

NARRATIVE: CASE EVENT DATE: 20250813
